FAERS Safety Report 21643004 (Version 2)
Quarter: 2022Q4

REPORT INFORMATION
  Report Type: Spontaneous
  Country: US (occurrence: US)
  Receive Date: 20221125
  Receipt Date: 20221210
  Transmission Date: 20230113
  Serious: Yes (Death, Hospitalization, Other)
  Sender: FDA-Public Use
  Company Number: US-AMGEN-USASP2022198912

PATIENT

DRUGS (11)
  1. FILGRASTIM [Suspect]
     Active Substance: FILGRASTIM
     Indication: Neutropenia
     Dosage: 5 MICROGRAM/KILOGRAM, AS CLINICALLY INDICATED
     Route: 058
  2. BRENTUXIMAB VEDOTIN [Concomitant]
     Active Substance: BRENTUXIMAB VEDOTIN
     Dosage: 1.2 MILLIGRAM/KILOGRAM,  OVER 30 MINUTES, FOR 1, 8, AND 15 DAYS
     Route: 040
  3. ETOPOSIDE [Concomitant]
     Active Substance: ETOPOSIDE
     Dosage: 125 MILLIGRAM/SQ. METER, OVER 1-2 HOURS, FOR 1-5 DAYS
     Route: 040
  4. PREDNISONE [Concomitant]
     Active Substance: PREDNISONE
     Dosage: 60 MILLIGRAM/SQ. METER, QD FOR 1-15 (DIVIDED THREE TIMES A DAY)
     Route: 048
  5. DOXORUBICIN [Concomitant]
     Active Substance: DOXORUBICIN
     Dosage: 40 MILLIGRAM/SQ. METER, OVER 1-6 HOURS, FOR 1 AND 15 DAYS
     Route: 040
  6. CYCLOPHOSPHAMIDE [Concomitant]
     Active Substance: CYCLOPHOSPHAMIDE
     Dosage: 500 MILLIGRAM/SQ. METER, OVER 60 MINUTES, FOR 1 AND 8 DAYS
     Route: 040
  7. DACARBAZINE [Concomitant]
     Active Substance: DACARBAZINE
     Dosage: 250 MILLIGRAM/SQ. METER, OVER 15-30 MINUTES FOR 1-3 DAYS
     Route: 040
  8. VINCRISTINE [Concomitant]
     Active Substance: VINCRISTINE
  9. BLEOMYCIN [Concomitant]
     Active Substance: BLEOMYCIN SULFATE
  10. VINBLASTINE [Concomitant]
     Active Substance: VINBLASTINE
  11. NITROGEN MUSTARD [Concomitant]
     Active Substance: MECHLORETHAMINE OXIDE HYDROCHLORIDE

REACTIONS (21)
  - Ventricular tachycardia [Fatal]
  - Febrile neutropenia [Unknown]
  - Osteonecrosis [Unknown]
  - Carditis [Unknown]
  - Hodgkin^s disease [Recovered/Resolved]
  - Peripheral sensory neuropathy [Unknown]
  - Leukopenia [Unknown]
  - Neutropenia [Unknown]
  - Lymphopenia [Unknown]
  - Genitourinary tract infection [Unknown]
  - Neuralgia [Unknown]
  - Thrombocytopenia [Unknown]
  - Anaemia [Unknown]
  - Upper respiratory tract infection [Unknown]
  - Weight increased [Unknown]
  - Mucosal inflammation [Unknown]
  - Pain [Unknown]
  - Nausea [Unknown]
  - Vomiting [Unknown]
  - Constipation [Unknown]
  - Muscle spasms [Unknown]
